FAERS Safety Report 10208785 (Version 3)
Quarter: 2015Q3

REPORT INFORMATION
  Report Type: Report from Study
  Country: US (occurrence: US)
  Receive Date: 20140530
  Receipt Date: 20150916
  Transmission Date: 20151125
  Serious: Yes (Life-Threatening, Hospitalization, Other)
  Sender: FDA-Public Use
  Company Number: US-ALEXION PHARMACEUTICALS INC.-A201305302

PATIENT

DRUGS (2)
  1. SOLIRIS [Suspect]
     Active Substance: ECULIZUMAB
     Dosage: 300 MG, SINGLE
     Route: 042
     Dates: start: 20130814, end: 20130814
  2. SOLIRIS [Suspect]
     Active Substance: ECULIZUMAB
     Indication: HAEMOLYTIC URAEMIC SYNDROME
     Dosage: 600 MG, SINGLE
     Route: 042
     Dates: start: 20130808, end: 20130808

REACTIONS (4)
  - Anuria [Unknown]
  - Seizure [Unknown]
  - Coma [Unknown]
  - Intensive care [Unknown]

NARRATIVE: CASE EVENT DATE: 20130814
